FAERS Safety Report 4346397-2 (Version None)
Quarter: 2004Q2

REPORT INFORMATION
  Report Type: 
  Country: None (occurrence: None)
  Receive Date: 20040426
  Receipt Date: 20040218
  Transmission Date: 20050107
  Serious: No
  Sender: FDA-Public Use
  Company Number: US-GLAXOSMITHKLINE-A0498773A

PATIENT
  Age: 43 Year
  Sex: Female

DRUGS (5)
  1. ZOFRAN [Suspect]
     Indication: PROPHYLAXIS OF NAUSEA AND VOMITING
     Route: 048
     Dates: start: 19990101, end: 19990101
  2. BENADRYL [Concomitant]
  3. ADRIAMYCIN PFS [Concomitant]
  4. TAXOL [Concomitant]
  5. CYTOSINE [Concomitant]

REACTIONS (1)
  - MIGRAINE [None]
